FAERS Safety Report 8548757-2 (Version None)
Quarter: 2012Q3

REPORT INFORMATION
  Report Type: 
  Country: None (occurrence: None)
  Receive Date: 20120730
  Receipt Date: 20120724
  Transmission Date: 20120928
  Serious: Yes (Hospitalization)
  Sender: FDA-Public Use
  Company Number: PHEH2012US014538

PATIENT
  Sex: Female
  Weight: 68.934 kg

DRUGS (1)
  1. RECLAST [Suspect]
     Dosage: UNK
     Route: 042

REACTIONS (3)
  - DIABETES MELLITUS [None]
  - IMPAIRED HEALING [None]
  - LIMB INJURY [None]
